FAERS Safety Report 10141547 (Version 3)
Quarter: 2014Q2

REPORT INFORMATION
  Report Type: Spontaneous
  Country: US (occurrence: US)
  Receive Date: 20140429
  Receipt Date: 20140602
  Transmission Date: 20141212
  Serious: Yes (Hospitalization)
  Sender: FDA-Public Use
  Company Number: US-GLAXOSMITHKLINE-A1071256A

PATIENT
  Age: 64 Year
  Sex: Female

DRUGS (2)
  1. FLOLAN [Suspect]
     Indication: PULMONARY ARTERIAL HYPERTENSION
     Dosage: 26NGKM CONTINUOUS
     Route: 042
     Dates: start: 20030513
  2. COUMADIN [Concomitant]

REACTIONS (5)
  - Investigation [Unknown]
  - Dyspnoea [Unknown]
  - Catheter removal [Unknown]
  - Device breakage [Unknown]
  - Central venous catheterisation [Unknown]
